FAERS Safety Report 11398468 (Version 2)
Quarter: 2015Q4

REPORT INFORMATION
  Report Type: Report from Study
  Country: IT (occurrence: IT)
  Receive Date: 20150820
  Receipt Date: 20151002
  Transmission Date: 20160304
  Serious: Yes (Death, Hospitalization)
  Sender: FDA-Public Use
  Company Number: IT-ROCHE-1623310

PATIENT
  Age: 67 Year
  Sex: Male

DRUGS (7)
  1. QUARK [Concomitant]
     Active Substance: RAMIPRIL
     Dosage: 2.5 MG
     Route: 065
  2. PANTOPRAZOLE [Concomitant]
     Active Substance: PANTOPRAZOLE SODIUM
     Dosage: 40 MG
     Route: 065
  3. ESBRIET [Suspect]
     Active Substance: PIRFENIDONE
     Indication: IDIOPATHIC PULMONARY FIBROSIS
     Route: 048
     Dates: start: 20140915, end: 20150420
  4. ZETIA [Concomitant]
     Active Substance: EZETIMIBE
     Route: 065
  5. IVABRADINE [Concomitant]
     Active Substance: IVABRADINE
     Dosage: 10 MG
     Route: 065
  6. LANTUS [Concomitant]
     Active Substance: INSULIN GLARGINE
     Dosage: 1
     Route: 065
  7. CARDIOASPIRIN [Concomitant]
     Active Substance: ASPIRIN
     Dosage: 100 MG
     Route: 065

REACTIONS (4)
  - Stress [Unknown]
  - Pneumonia legionella [Fatal]
  - Hip arthroplasty [Unknown]
  - Anxiety [Unknown]

NARRATIVE: CASE EVENT DATE: 20150423
